FAERS Safety Report 6698755-9 (Version None)
Quarter: 2010Q2

REPORT INFORMATION
  Report Type: 
  Country: None (occurrence: None)
  Receive Date: 20100427
  Receipt Date: 20100415
  Transmission Date: 20101027
  Serious: Yes (Other)
  Sender: FDA-Public Use
  Company Number: PHEH2008US01396

PATIENT
  Sex: Male

DRUGS (3)
  1. ELIDEL [Suspect]
     Indication: PSORIASIS
     Route: 061
     Dates: start: 20020101
  2. BLOOD CELLS, PACKED HUMAN [Concomitant]
     Dosage: 2 UNITS DURING SURGERY
     Dates: start: 20060331, end: 20060331
  3. PERCOCET [Concomitant]
     Dosage: UNK
     Dates: start: 20060101

REACTIONS (9)
  - ALANINE AMINOTRANSFERASE INCREASED [None]
  - ATELECTASIS [None]
  - BLOOD GLUCOSE INCREASED [None]
  - BLOOD UREA NITROGEN/CREATININE RATIO DECREASED [None]
  - INJURY [None]
  - LUNG DISORDER [None]
  - NEPHRECTOMY [None]
  - RENAL CELL CARCINOMA [None]
  - RENAL MASS [None]
